FAERS Safety Report 18333684 (Version 3)
Quarter: 2023Q4

REPORT INFORMATION
  Report Type: Spontaneous
  Country: US (occurrence: None)
  Receive Date: 20201001
  Receipt Date: 20231123
  Transmission Date: 20240109
  Serious: Yes (Hospitalization, Other)
  Sender: FDA-Public Use
  Company Number: 2020SF25322

PATIENT
  Age: 469 Month
  Sex: Male
  Weight: 147.1 kg

DRUGS (60)
  1. XIGDUO XR [Suspect]
     Active Substance: DAPAGLIFLOZIN PROPANEDIOL\METFORMIN HYDROCHLORIDE
     Indication: Type 2 diabetes mellitus
     Route: 048
     Dates: start: 201610, end: 20170427
  2. XIGDUO XR [Suspect]
     Active Substance: DAPAGLIFLOZIN PROPANEDIOL\METFORMIN HYDROCHLORIDE
     Indication: Weight decreased
     Route: 048
     Dates: start: 201610, end: 20170427
  3. XIGDUO XR [Suspect]
     Active Substance: DAPAGLIFLOZIN PROPANEDIOL\METFORMIN HYDROCHLORIDE
     Indication: Blood pressure decreased
     Route: 048
     Dates: start: 201610, end: 20170427
  4. XIGDUO XR [Suspect]
     Active Substance: DAPAGLIFLOZIN PROPANEDIOL\METFORMIN HYDROCHLORIDE
     Indication: Type 2 diabetes mellitus
     Dosage: 50-1000 MG DAILY
     Route: 048
     Dates: start: 20170427
  5. XIGDUO XR [Suspect]
     Active Substance: DAPAGLIFLOZIN PROPANEDIOL\METFORMIN HYDROCHLORIDE
     Indication: Weight decreased
     Dosage: 50-1000 MG DAILY
     Route: 048
     Dates: start: 20170427
  6. XIGDUO XR [Suspect]
     Active Substance: DAPAGLIFLOZIN PROPANEDIOL\METFORMIN HYDROCHLORIDE
     Indication: Blood pressure decreased
     Dosage: 50-1000 MG DAILY
     Route: 048
     Dates: start: 20170427
  7. XIGDUO XR [Suspect]
     Active Substance: DAPAGLIFLOZIN PROPANEDIOL\METFORMIN HYDROCHLORIDE
     Indication: Type 2 diabetes mellitus
     Route: 048
     Dates: start: 201610, end: 201612
  8. XIGDUO XR [Suspect]
     Active Substance: DAPAGLIFLOZIN PROPANEDIOL\METFORMIN HYDROCHLORIDE
     Indication: Weight decreased
     Route: 048
     Dates: start: 201610, end: 201612
  9. XIGDUO XR [Suspect]
     Active Substance: DAPAGLIFLOZIN PROPANEDIOL\METFORMIN HYDROCHLORIDE
     Indication: Blood pressure decreased
     Route: 048
     Dates: start: 201610, end: 201612
  10. OMEPRAZOLE [Concomitant]
     Active Substance: OMEPRAZOLE
     Dates: start: 20160819
  11. METFORMIN [Concomitant]
     Active Substance: METFORMIN HYDROCHLORIDE
     Dates: start: 20160819
  12. GABAPENTIN [Concomitant]
     Active Substance: GABAPENTIN
     Dates: start: 20160824
  13. TRADJENTA [Concomitant]
     Active Substance: LINAGLIPTIN
     Dates: start: 2018, end: 2020
  14. AMOXICILLIN [Concomitant]
     Active Substance: AMOXICILLIN
     Dates: start: 20160907
  15. PROAIR HFA [Concomitant]
     Active Substance: ALBUTEROL SULFATE
     Dates: start: 20160907
  16. CARAFATE [Concomitant]
     Active Substance: SUCRALFATE
     Dates: start: 20170109
  17. FLUCONAZOLE [Concomitant]
     Active Substance: FLUCONAZOLE
     Dates: start: 20170111
  18. NYSTOP [Concomitant]
     Active Substance: NYSTATIN
     Dates: start: 20170116
  19. ZOLPIDEM [Concomitant]
     Active Substance: ZOLPIDEM TARTRATE
     Dates: start: 20170109
  20. TRAMADOL [Concomitant]
     Active Substance: TRAMADOL\TRAMADOL HYDROCHLORIDE
     Dates: start: 20170105
  21. JANUMET [Concomitant]
     Active Substance: METFORMIN HYDROCHLORIDE\SITAGLIPTIN PHOSPHATE
     Dates: start: 20161214
  22. AZITHROMYCIN [Concomitant]
     Active Substance: AZITHROMYCIN
  23. CETIRIZINE HYDROCHLORIDE [Concomitant]
     Active Substance: CETIRIZINE HYDROCHLORIDE
  24. PROPRANOLOL HYDROCHLORIDE [Concomitant]
     Active Substance: PROPRANOLOL HYDROCHLORIDE
  25. SUMATRIPTAN [Concomitant]
     Active Substance: SUMATRIPTAN
  26. BYDUREON [Concomitant]
     Active Substance: EXENATIDE
     Dates: start: 20170428
  27. LISINOPRIL [Concomitant]
     Active Substance: LISINOPRIL
     Dates: start: 20170605
  28. LIDOCAINE [Concomitant]
     Active Substance: LIDOCAINE
     Dates: start: 20170427
  29. OXYCODONE [Concomitant]
     Active Substance: OXYCODONE
     Dates: start: 20170525
  30. MUPIROCIN [Concomitant]
     Active Substance: MUPIROCIN
     Dates: start: 20170608
  31. ESCITALOPRAM [Concomitant]
     Active Substance: ESCITALOPRAM OXALATE
     Dates: start: 20170815
  32. SKLICE [Concomitant]
     Active Substance: IVERMECTIN
     Dates: start: 20170927
  33. NICOTINE [Concomitant]
     Active Substance: NICOTINE
  34. KETOCONAZOLE [Concomitant]
     Active Substance: KETOCONAZOLE
  35. ADVAIR HFA [Concomitant]
     Active Substance: FLUTICASONE PROPIONATE\SALMETEROL XINAFOATE
  36. CEPHALEXIN [Concomitant]
     Active Substance: CEPHALEXIN
  37. RIZATRIPTAN [Concomitant]
     Active Substance: RIZATRIPTAN
  38. FLUTICASONE [Concomitant]
     Active Substance: FLUTICASONE
  39. MELOXICAM [Concomitant]
     Active Substance: MELOXICAM
  40. HUMALOG [Concomitant]
     Active Substance: INSULIN LISPRO
     Dates: start: 2018
  41. GUAIFENESIN [Concomitant]
     Active Substance: GUAIFENESIN
  42. DAPTOMYCIN [Concomitant]
     Active Substance: DAPTOMYCIN
  43. MORPHINE [Concomitant]
     Active Substance: MORPHINE
  44. MIDAZOLAM [Concomitant]
     Active Substance: MIDAZOLAM
  45. PRECEDEX [Concomitant]
     Active Substance: DEXMEDETOMIDINE HYDROCHLORIDE
  46. ALFENTANIL [Concomitant]
     Active Substance: ALFENTANIL
  47. PERCOCET [Concomitant]
     Active Substance: ACETAMINOPHEN\OXYCODONE HYDROCHLORIDE
  48. METFORMIN\SITAGLIPTIN [Concomitant]
     Active Substance: METFORMIN\SITAGLIPTIN
     Route: 065
     Dates: start: 20150222
  49. TRESIBA [Concomitant]
     Active Substance: INSULIN DEGLUDEC
  50. IMITREX [Concomitant]
     Active Substance: SUMATRIPTAN SUCCINATE
  51. GLYXAMBI [Concomitant]
     Active Substance: EMPAGLIFLOZIN\LINAGLIPTIN
  52. AUGMENTIN [Concomitant]
     Active Substance: AMOXICILLIN\CLAVULANATE POTASSIUM
  53. BETAMETHASONE/KETOROLAC [Concomitant]
  54. CLOBETASOL [Concomitant]
     Active Substance: CLOBETASOL
  55. PIOGLITASONE [Concomitant]
  56. OZEMPIC [Concomitant]
     Active Substance: SEMAGLUTIDE
     Dates: start: 2023
  57. BYETTA [Concomitant]
     Active Substance: EXENATIDE
     Dates: start: 2018, end: 2020
  58. TRULICITY [Concomitant]
     Active Substance: DULAGLUTIDE
     Dates: start: 2018, end: 2022
  59. JANUVIA [Concomitant]
     Active Substance: SITAGLIPTIN PHOSPHATE
     Dates: start: 2018, end: 2021
  60. EMPAGLIFLOZIN [Concomitant]
     Active Substance: EMPAGLIFLOZIN
     Dates: start: 2017

REACTIONS (13)
  - Fournier^s gangrene [Unknown]
  - Sepsis [Unknown]
  - Genital abscess [Unknown]
  - Anal abscess [Unknown]
  - Cellulitis [Unknown]
  - Tooth abscess [Unknown]
  - Necrotising fasciitis [Unknown]
  - Scrotum erosion [Unknown]
  - Groin abscess [Unknown]
  - Pain [Unknown]
  - Scar [Unknown]
  - Anal incontinence [Unknown]
  - Nerve injury [Unknown]

NARRATIVE: CASE EVENT DATE: 20161201
